FAERS Safety Report 14567962 (Version 2)
Quarter: 2018Q1

REPORT INFORMATION
  Report Type: Spontaneous
  Country: DE (occurrence: DE)
  Receive Date: 20180223
  Receipt Date: 20180308
  Transmission Date: 20180509
  Serious: Yes (Death, Other)
  Sender: FDA-Public Use
  Company Number: DE-ASTRAZENECA-2018SE21457

PATIENT
  Sex: Female
  Weight: 58 kg

DRUGS (7)
  1. CISPLATIN. [Concomitant]
     Active Substance: CISPLATIN
  2. YONDELIS+CAELYX [Concomitant]
     Dosage: FEB-JUNE 2013, APR-JUL-2014
     Route: 042
  3. LYNPARZA [Suspect]
     Active Substance: OLAPARIB
     Indication: OVARIAN CANCER
     Route: 048
     Dates: start: 20160817
  4. CARBOPLATIN+TAXOL+AVASTIN [Concomitant]
     Dosage: AUG-NOV-2014
  5. LYNPARZA [Suspect]
     Active Substance: OLAPARIB
     Indication: OVARIAN CANCER
     Route: 048
     Dates: end: 20170223
  6. CARBOPLATIN + PACLITAXEL [Concomitant]
     Dosage: MARCH-JULY 2012
     Route: 042
  7. CARBOPLATIN+GEMCITABINE+AVASTIN [Concomitant]
     Dosage: DEC-2014-JAN 2015, APR-JUL-2016

REACTIONS (1)
  - Chronic myelomonocytic leukaemia [Fatal]
